FAERS Safety Report 25767891 (Version 1)
Quarter: 2025Q3

REPORT INFORMATION
  Report Type: Spontaneous
  Country: US (occurrence: None)
  Receive Date: 20250905
  Receipt Date: 20250905
  Transmission Date: 20251021
  Serious: No
  Sender: FDA-CTU
  Company Number: None

PATIENT
  Age: 82 Year
  Sex: Female

DRUGS (1)
  1. KISQALI [Suspect]
     Active Substance: RIBOCICLIB SUCCINATE
     Indication: Breast cancer
     Dosage: FREQUENCY : DAILY;?STRENGTH: 400 (200 TB BL STR PK) MG MILLIGRAM(S)
     Route: 048
     Dates: start: 20250304

REACTIONS (2)
  - Drug ineffective [None]
  - Therapy cessation [None]
